FAERS Safety Report 5211711-2 (Version None)
Quarter: 2007Q1

REPORT INFORMATION
  Report Type: 
  Country: None (occurrence: None)
  Receive Date: 20070118
  Receipt Date: 20070112
  Transmission Date: 20070707
  Serious: Yes (Hospitalization, Disabling, Other)
  Sender: FDA-Public Use
  Company Number: US-BAYER-200610315BWH

PATIENT
  Age: 77 Year
  Sex: Male

DRUGS (5)
  1. SORAFENIB [Suspect]
     Indication: RENAL CELL CARCINOMA STAGE UNSPECIFIED
     Dosage: TOTAL DAILY DOSE: 800 MG  UNIT DOSE: 200 MG
     Route: 048
     Dates: start: 20050901, end: 20061101
  2. HYDROCHLOROTHIAZIDE [Concomitant]
  3. IMODIUM [Concomitant]
  4. VITAMIN [Concomitant]
  5. ZOMETA [Concomitant]

REACTIONS (10)
  - BONE DISORDER [None]
  - DIARRHOEA [None]
  - FLUSHING [None]
  - GAIT DISTURBANCE [None]
  - HYPERTENSION [None]
  - LIMB DISCOMFORT [None]
  - MUSCULAR WEAKNESS [None]
  - PAIN IN EXTREMITY [None]
  - PATHOLOGICAL FRACTURE [None]
  - RENAL CELL CARCINOMA STAGE UNSPECIFIED [None]
